FAERS Safety Report 5210876-6 (Version None)
Quarter: 2006Q4

REPORT INFORMATION
  Report Type: 
  Country: None (occurrence: None)
  Receive Date: 20061130
  Receipt Date: 20060713
  Transmission Date: 20070319
  Serious: Yes (Disabling, Other)
  Sender: FDA-Public Use
  Company Number: WAES 0607USA02599

PATIENT
  Age: 49 Year
  Sex: Male
  Weight: 84.369 kg

DRUGS (18)
  1. FOSAMAX [Suspect]
     Indication: OSTEOPOROSIS
     Dosage: 70 MG/WKY/PO
     Route: 048
     Dates: start: 20050630, end: 20051014
  2. ALLEGRA [Concomitant]
  3. AREDIA [Concomitant]
  4. CASODEX [Concomitant]
  5. COUMADIN [Concomitant]
  6. FLEXERIL [Concomitant]
  7. LIDODERM [Concomitant]
  8. LUPRON [Concomitant]
  9. NORCO [Concomitant]
  10. PRILOSEC [Concomitant]
  11. TAXOTERE [Concomitant]
  12. ZOFRAN [Concomitant]
  13. ZOMETA [Concomitant]
  14. CALCIUM CITRATE (+) VITAMIN D [Concomitant]
  15. IBUPROFEN [Concomitant]
  16. LISINOPRIL [Concomitant]
  17. LOVASTATIN [Concomitant]
  18. VITAMIN D [Concomitant]

REACTIONS (2)
  - OSTEOMYELITIS [None]
  - OSTEONECROSIS [None]
